FAERS Safety Report 13910963 (Version 1)
Quarter: 2017Q3

REPORT INFORMATION
  Report Type: Spontaneous
  Country: US (occurrence: None)
  Receive Date: 20170825
  Receipt Date: 20170825
  Transmission Date: 20171127
  Serious: No
  Sender: FDA-Public Use
  Company Number: None

PATIENT
  Age: 44 Year
  Sex: Female
  Weight: 97.98 kg

DRUGS (1)
  1. SUBOXONE [Suspect]
     Active Substance: BUPRENORPHINE HYDROCHLORIDE\NALOXONE HYDROCHLORIDE
     Indication: DRUG DEPENDENCE
     Dosage: 8-2 MG TABLET 2 1/4 DAILY 2 1/4 DAILY UNDER THE TOUNGE
     Dates: start: 20170623

REACTIONS (10)
  - Pain [None]
  - Vomiting [None]
  - Withdrawal syndrome [None]
  - Diarrhoea [None]
  - Therapy change [None]
  - Myalgia [None]
  - Palpitations [None]
  - Depression [None]
  - Hyperhidrosis [None]
  - Nausea [None]
